FAERS Safety Report 4777085-6 (Version None)
Quarter: 2005Q3

REPORT INFORMATION
  Report Type: 
  Country: None (occurrence: None)
  Receive Date: 20050923
  Receipt Date: 20050914
  Transmission Date: 20060218
  Serious: Yes (Other)
  Sender: FDA-Public Use
  Company Number: FR-JNJFOC-20050904070

PATIENT
  Age: 38 Year
  Sex: Male

DRUGS (3)
  1. RISPERDAL [Suspect]
     Route: 048
     Dates: start: 20040101
  2. DEPAMIDE [Concomitant]
     Route: 065
  3. PAROXETINE [Concomitant]
     Route: 065

REACTIONS (1)
  - STRABISMUS [None]
